FAERS Safety Report 15607504 (Version 1)
Quarter: 2018Q4

REPORT INFORMATION
  Report Type: Spontaneous
  Country: ZA (occurrence: ZA)
  Receive Date: 20181112
  Receipt Date: 20181112
  Transmission Date: 20190205
  Serious: Yes (Other)
  Sender: FDA-Public Use
  Company Number: ZA-MYLANLABS-2018M1074968

PATIENT
  Age: 12 Year
  Sex: Male

DRUGS (2)
  1. MYLAN REMIFENTANIL [Suspect]
     Active Substance: REMIFENTANIL
     Indication: GENERAL ANAESTHESIA
     Dosage: (0.4 MCG/KG/MIN)
     Route: 042
  2. MYLAN REMIFENTANIL [Suspect]
     Active Substance: REMIFENTANIL
     Indication: BRAIN TUMOUR OPERATION

REACTIONS (1)
  - Drug ineffective [Unknown]
